FAERS Safety Report 18029563 (Version 1)
Quarter: 2020Q3

REPORT INFORMATION
  Report Type: Spontaneous
  Country: US (occurrence: US)
  Receive Date: 20200715
  Receipt Date: 20200715
  Transmission Date: 20201103
  Serious: Yes (Hospitalization)
  Sender: FDA-Public Use
  Company Number: None

PATIENT
  Age: 63 Year
  Sex: Female

DRUGS (29)
  1. LORAZEPAM. [Concomitant]
     Active Substance: LORAZEPAM
  2. EVEROLIMUS 2.5MG (7 TAB/CARD) [Suspect]
     Active Substance: EVEROLIMUS
     Indication: BREAST CANCER
     Route: 048
     Dates: start: 20200322
  3. CALCITRATE [Concomitant]
     Active Substance: CALCIUM CITRATE
  4. FEMARA [Concomitant]
     Active Substance: LETROZOLE
  5. HYDROXYZ PAM [Concomitant]
     Active Substance: HYDROXYZINE PAMOATE
  6. MIDODRINE [Concomitant]
     Active Substance: MIDODRINE
  7. MONTELUKAST [Concomitant]
     Active Substance: MONTELUKAST SODIUM
  8. DRONABINOL. [Concomitant]
     Active Substance: DRONABINOL
  9. PREDNISONE. [Concomitant]
     Active Substance: PREDNISONE
  10. VANCOMYCIN [Concomitant]
     Active Substance: VANCOMYCIN
  11. CEPHALEXIN. [Concomitant]
     Active Substance: CEPHALEXIN
  12. GABAPENTIN. [Concomitant]
     Active Substance: GABAPENTIN
  13. ONDANSETRON [Concomitant]
     Active Substance: ONDANSETRON
  14. DOXYCYCL HYC [Concomitant]
  15. MORPHINE SUL [Concomitant]
     Active Substance: MORPHINE SULFATE
  16. PROCHLORPER [Concomitant]
  17. CYANOCOBALAM [Concomitant]
     Active Substance: CYANOCOBALAMIN
  18. ELIQUIS [Concomitant]
     Active Substance: APIXABAN
  19. FLUDROCORT [Concomitant]
  20. METOCLOPRAM [Concomitant]
     Active Substance: METOCLOPRAMIDE
  21. TRAMADOL HCL [Concomitant]
     Active Substance: TRAMADOL HYDROCHLORIDE
  22. AMOX/K CLAV [Concomitant]
     Active Substance: AMOXICILLIN\CLAVULANATE POTASSIUM
  23. LIDO/PRILOCN CRE [Concomitant]
  24. VITAMIN D [Concomitant]
     Active Substance: VITAMIN D NOS
  25. CLOTRIMAZOLE. [Concomitant]
     Active Substance: CLOTRIMAZOLE
  26. FENOFIBRATE. [Concomitant]
     Active Substance: FENOFIBRATE
  27. LEVOFLOXACIN. [Concomitant]
     Active Substance: LEVOFLOXACIN
  28. PANTOPRAZOLE [Concomitant]
     Active Substance: PANTOPRAZOLE
  29. VENTOLIN HFA [Concomitant]
     Active Substance: ALBUTEROL SULFATE

REACTIONS (2)
  - Withdrawal syndrome [None]
  - Clostridium difficile infection [None]

NARRATIVE: CASE EVENT DATE: 20200701
